FAERS Safety Report 13061569 (Version 1)
Quarter: 2016Q4

REPORT INFORMATION
  Report Type: Spontaneous
  Country: US (occurrence: US)
  Receive Date: 20161226
  Receipt Date: 20161226
  Transmission Date: 20170207
  Serious: No
  Sender: FDA-Public Use
  Company Number: US-NOVEN PHARMACEUTICALS, INC.-US2016000582

PATIENT

DRUGS (6)
  1. MINIVELLE [Suspect]
     Active Substance: ESTRADIOL
     Indication: HORMONE REPLACEMENT THERAPY
     Dosage: CUTTING CORNERS OF 0.025 MG PATCH
     Route: 062
  2. MINIVELLE [Suspect]
     Active Substance: ESTRADIOL
     Dosage: CUTTING 0.05 MG PATCH INTO QUARTERS 2/WK
     Route: 062
  3. MINIVELLE [Suspect]
     Active Substance: ESTRADIOL
     Dosage: CUTTING 0.025 MG INTO HALF
     Route: 062
  4. SILVADENE [Concomitant]
     Active Substance: SILVER SULFADIAZINE
  5. POTASSIUM [Concomitant]
     Active Substance: POTASSIUM
  6. MINIVELLE [Suspect]
     Active Substance: ESTRADIOL
     Indication: HYSTERECTOMY
     Dosage: CUTTING 0.025 INTO HALF, 2/WK
     Route: 062
     Dates: start: 2011

REACTIONS (5)
  - Anxiety [Unknown]
  - Wrong technique in product usage process [Not Recovered/Not Resolved]
  - Incorrect drug administration duration [Unknown]
  - Heart rate increased [Unknown]
  - Off label use [Not Recovered/Not Resolved]

NARRATIVE: CASE EVENT DATE: 2011
